FAERS Safety Report 21530565 (Version 1)
Quarter: 2022Q4

REPORT INFORMATION
  Report Type: Spontaneous
  Country: US (occurrence: None)
  Receive Date: 20221029
  Receipt Date: 20221029
  Transmission Date: 20230112
  Serious: Yes (Other)
  Sender: FDA-Public Use
  Company Number: None

PATIENT
  Age: 73 Year
  Sex: Female
  Weight: 85.5 kg

DRUGS (7)
  1. RISEDRONATE SODIUM [Suspect]
     Active Substance: RISEDRONATE SODIUM
     Indication: Osteoporosis
     Dosage: OTHER QUANTITY : 1 TABLET(S);?
     Route: 048
     Dates: start: 20221012, end: 20221026
  2. TAMOXIFEN [Concomitant]
     Active Substance: TAMOXIFEN
  3. CLONAZEPAM [Concomitant]
     Active Substance: CLONAZEPAM
  4. ZESTRIL [Concomitant]
     Active Substance: LISINOPRIL
  5. VITAMIN D [Concomitant]
     Active Substance: VITAMIN D NOS
  6. VITAMIN B [Concomitant]
     Active Substance: VITAMIN B
  7. TYLENOL [Concomitant]
     Active Substance: ACETAMINOPHEN

REACTIONS (11)
  - Influenza like illness [None]
  - Chills [None]
  - Asthenia [None]
  - Nausea [None]
  - Diarrhoea [None]
  - Productive cough [None]
  - Cough [None]
  - Dyspnoea [None]
  - Joint swelling [None]
  - Decreased appetite [None]
  - Oropharyngeal discomfort [None]

NARRATIVE: CASE EVENT DATE: 20221026
